FAERS Safety Report 9097455 (Version 1)
Quarter: 2013Q1

REPORT INFORMATION
  Report Type: Spontaneous
  Country: DE (occurrence: DE)
  Receive Date: 20130212
  Receipt Date: 20130212
  Transmission Date: 20140127
  Serious: Yes (Death)
  Sender: FDA-Public Use
  Company Number: DE-AMGEN-DEUSP2013009503

PATIENT
  Age: 77 Year
  Sex: Female

DRUGS (3)
  1. ENBREL [Suspect]
     Indication: RHEUMATOID ARTHRITIS
     Dosage: 25 MG ALL FOUR DAYS
     Dates: start: 20070907, end: 20130204
  2. DIOVAN [Concomitant]
     Dosage: UNK
  3. HYDROMORPHONE [Concomitant]
     Dosage: 2X 8 MG

REACTIONS (1)
  - Death [Fatal]
